FAERS Safety Report 4945124-5 (Version None)
Quarter: 2006Q1

REPORT INFORMATION
  Report Type: 
  Country: None (occurrence: None)
  Receive Date: 20060316
  Receipt Date: 20060314
  Transmission Date: 20060701
  Serious: Yes (Life-Threatening, Hospitalization, Other)
  Sender: FDA-Public Use
  Company Number: US-JNJFOC-20031003659

PATIENT
  Sex: Male
  Weight: 81.19 kg

DRUGS (4)
  1. REMICADE [Suspect]
     Route: 042
  2. REMICADE [Suspect]
     Route: 042
  3. REMICADE [Suspect]
     Indication: RHEUMATOID ARTHRITIS
     Route: 042
  4. METHOTREXATE [Concomitant]
     Indication: RHEUMATOID ARTHRITIS
     Dates: start: 19900101, end: 20030901

REACTIONS (7)
  - ANOREXIA [None]
  - ANTINUCLEAR ANTIBODY POSITIVE [None]
  - FATIGUE [None]
  - HYPONATRAEMIA [None]
  - LIGHT CHAIN ANALYSIS [None]
  - TREATMENT NONCOMPLIANCE [None]
  - TUBERCULOSIS LIVER [None]
